FAERS Safety Report 8922873 (Version 1)
Quarter: 2012Q4

REPORT INFORMATION
  Report Type: 
  Country: US (occurrence: US)
  Receive Date: 20121125
  Receipt Date: 20121125
  Transmission Date: 20130627
  Serious: Yes (Hospitalization)
  Sender: FDA-Public Use
  Company Number: US-B.I. PHARMACEUTICALS,INC./RIDGEFIELD-2012-BI-01247BP

PATIENT
  Age: 97 None
  Sex: Female

DRUGS (20)
  1. PRADAXA [Suspect]
     Indication: ATRIAL FIBRILLATION
     Dosage: 150 mg
     Route: 048
     Dates: start: 2011
  2. CARDIZEM [Concomitant]
     Indication: HYPERTENSION
     Dosage: 120 mg
     Route: 048
     Dates: start: 2011
  3. LASIX [Concomitant]
     Indication: CARDIAC FAILURE CONGESTIVE
     Dosage: 40 mg
     Route: 048
  4. ASPIRIN [Concomitant]
     Indication: PROPHYLAXIS
     Dosage: 81 mg
     Route: 048
  5. HUMALOG [Concomitant]
     Indication: DIABETES MELLITUS
  6. GLUCOSAMINE WITH CHONDROITIN [Concomitant]
     Indication: BONE DISORDER
     Dosage: Strength: 1500 mg / 1200 mg; Daily Dose: 1500 mg / 1200 mg
     Route: 048
  7. VITAMIN B COMPLEX [Concomitant]
     Indication: MUSCLE DISORDER
  8. LANTUS [Concomitant]
     Indication: DIABETES MELLITUS
     Dosage: Strength: 12 units; Daily Dose: 12 units
  9. NIACIN [Concomitant]
     Indication: BLOOD CHOLESTEROL INCREASED
     Dosage: 250 mg
     Route: 048
  10. LUTEIN [Concomitant]
     Indication: GLAUCOMA
     Dosage: 20 mg
     Route: 048
  11. VITAMIN D [Concomitant]
     Indication: MINERAL SUPPLEMENTATION
     Dosage: Strength: 2000 IU; Daily Dose: 2000 IU
     Route: 048
  12. COREG CR [Concomitant]
     Indication: HYPERTENSION
     Dosage: Strength: 10 mg; Daily Dose: 10 mg
     Route: 048
  13. XALATAN [Concomitant]
     Indication: GLAUCOMA
     Dosage: Strength: 0.005%; Daily Dose: 0.005%
  14. POTASSIUM CHLORIDE [Concomitant]
     Dosage: 60 mg
     Route: 048
  15. CALCIUM CITRATE [Concomitant]
     Indication: BONE DISORDER
     Dosage: 500 mg
     Route: 048
  16. LEVOTHYROXINE [Concomitant]
     Indication: HYPOTHYROIDISM
     Dosage: 0.025 mg
     Route: 048
  17. MULTIVITAMIN [Concomitant]
     Indication: SUPPLEMENTATION THERAPY
     Dosage: (Tablet)
     Route: 048
  18. CRANBERRY [Concomitant]
     Dosage: (Tablet) Strength: 450 mg; Daily Dose: 450 mg
     Route: 048
  19. BILBERRY [Concomitant]
     Dosage: (Tablet)
     Route: 048
  20. DIGOXIN [Concomitant]
     Indication: CARDIAC FAILURE CONGESTIVE
     Dosage: Strength: 25 mg; Daily Dose: 25 mg
     Route: 048

REACTIONS (10)
  - Atrial fibrillation [Recovered/Resolved]
  - Cardiac failure congestive [Not Recovered/Not Resolved]
  - Blood glucose decreased [Unknown]
  - Oedema peripheral [Unknown]
  - Hip fracture [Recovered/Resolved]
  - Pharyngeal haemorrhage [Not Recovered/Not Resolved]
  - Diarrhoea [Recovered/Resolved]
  - Influenza [Recovered/Resolved]
  - Weight increased [Unknown]
  - Hypertension [Recovered/Resolved]
